FAERS Safety Report 8592370-8 (Version None)
Quarter: 2012Q3

REPORT INFORMATION
  Report Type: 
  Country: None (occurrence: None)
  Receive Date: 20120814
  Receipt Date: 20120806
  Transmission Date: 20120928
  Serious: Yes (Hospitalization, Other)
  Sender: FDA-Public Use
  Company Number: US-CELGENEUS-163-21880-12071142

PATIENT
  Sex: Male

DRUGS (9)
  1. REVLIMID [Suspect]
     Dosage: 25 MILLIGRAM
     Route: 048
     Dates: start: 20120229
  2. PROTEIN [Concomitant]
     Route: 065
  3. COUMADIN [Concomitant]
     Route: 065
  4. MORPHINE SULFATE [Concomitant]
     Route: 065
  5. OXYCODONE HCL [Concomitant]
     Route: 065
  6. ACYCLOVIR [Concomitant]
     Route: 065
  7. PRILOSEC [Concomitant]
     Route: 065
  8. AMBIEN [Concomitant]
     Route: 065
  9. XANAX [Concomitant]
     Route: 065

REACTIONS (2)
  - RENAL DISORDER [None]
  - MULTIPLE MYELOMA [None]
